FAERS Safety Report 21418990 (Version 3)
Quarter: 2022Q4

REPORT INFORMATION
  Report Type: Report from Study
  Country: AR (occurrence: AR)
  Receive Date: 20221006
  Receipt Date: 20221205
  Transmission Date: 20230113
  Serious: Yes (Hospitalization, Other)
  Sender: FDA-Public Use
  Company Number: AR-BRISTOL-MYERS SQUIBB COMPANY-2022-116434

PATIENT
  Age: 75 Year
  Sex: Male
  Weight: 71 kg

DRUGS (13)
  1. ELIQUIS [Suspect]
     Active Substance: APIXABAN
     Indication: Cerebrovascular accident prophylaxis
     Route: 065
     Dates: start: 202110
  2. OMEPRAZOLE [Concomitant]
     Active Substance: OMEPRAZOLE
     Indication: Renal transplant
     Dosage: DOSE = 40 MG PER DAY
     Route: 065
     Dates: start: 201206
  3. MYCOPHENOLATE MOFETIL [Concomitant]
     Active Substance: MYCOPHENOLATE MOFETIL
     Indication: Renal transplant
     Dosage: 1000 MG PER DAY
     Route: 065
     Dates: start: 201206
  4. PROGRAF [Concomitant]
     Active Substance: TACROLIMUS
     Indication: Product used for unknown indication
     Dosage: DOSE = 2 MG PER DAY
     Route: 065
  5. Deltisone  B [Concomitant]
     Indication: Renal transplant
     Dosage: DOSE = 4 MG PER DAY
     Route: 065
     Dates: start: 201206
  6. TAMSULOSIN [Concomitant]
     Active Substance: TAMSULOSIN
     Indication: Renal transplant
     Dosage: DOSE = 0.4 MG PER DAY
     Route: 065
     Dates: start: 201206
  7. AMLODIPINE [Concomitant]
     Active Substance: AMLODIPINE BESYLATE
     Indication: Product used for unknown indication
     Dosage: DOSE = 5 MG PER DAY
     Route: 065
  8. TACROLIMUS SANDOZ [TACROLIMUS] [Concomitant]
     Indication: Renal transplant
     Dosage: DOSE = 1.5 MG PER DAY
     Dates: start: 201206
  9. CALCIUM BASE [Concomitant]
     Dosage: DOSE = 2 TABLETS PER DAY
  10. ZARATOR [ATORVASTATIN CALCIUM] [Concomitant]
     Indication: Product used for unknown indication
     Dates: start: 202110
  11. CALCITRIOL 1a 25 [Concomitant]
     Indication: Product used for unknown indication
     Dosage: 1 TO 0.25 MG
     Dates: start: 202209
  12. FUROSEMIDA FECOFAR [Concomitant]
     Indication: Product used for unknown indication
     Dates: start: 202209
  13. SPIRONOLACTONE [Concomitant]
     Active Substance: SPIRONOLACTONE
     Indication: Product used for unknown indication
     Dates: start: 202109

REACTIONS (8)
  - Arteriovenous fistula thrombosis [Unknown]
  - Cellulitis [Unknown]
  - Arthritis bacterial [Unknown]
  - COVID-19 pneumonia [Unknown]
  - Tendonitis [Unknown]
  - Actinic keratosis [Unknown]
  - Bowen^s disease [Unknown]
  - Renal disorder [Unknown]

NARRATIVE: CASE EVENT DATE: 20220301
